FAERS Safety Report 16982534 (Version 1)
Quarter: 2019Q4

REPORT INFORMATION
  Report Type: Spontaneous
  Country: US (occurrence: US)
  Receive Date: 20191101
  Receipt Date: 20191101
  Transmission Date: 20200122
  Serious: No
  Sender: FDA-Public Use
  Company Number: US-MYLANLABS-2019M1100184

PATIENT
  Sex: Female
  Weight: 50 kg

DRUGS (4)
  1. OLMESARTAN [Concomitant]
     Active Substance: OLMESARTAN
     Dosage: 20 MILLIGRAM, BID
  2. CLONIDINE TRANSDERMAL SYSTEM [Suspect]
     Active Substance: CLONIDINE
     Indication: HYPERTENSION
     Dosage: UNK UNK, QW
     Route: 062
  3. MINOXIDIL. [Concomitant]
     Active Substance: MINOXIDIL
     Dosage: 5 MILLIGRAM, QD
  4. BYSTOLIC [Concomitant]
     Active Substance: NEBIVOLOL HYDROCHLORIDE
     Dosage: 5 MILLIGRAM, BID

REACTIONS (2)
  - Application site rash [Not Recovered/Not Resolved]
  - Skin exfoliation [Recovered/Resolved]
